FAERS Safety Report 8832247 (Version 1)
Quarter: 2012Q4

REPORT INFORMATION
  Report Type: 
  Country: AU (occurrence: AU)
  Receive Date: 20121009
  Receipt Date: 20121009
  Transmission Date: 20130627
  Serious: Yes (Other)
  Sender: FDA-Public Use
  Company Number: AU-B.I. PHARMACEUTICALS,INC./RIDGEFIELD-2012-AU-01713AU

PATIENT
  Age: 84 Year
  Sex: Female

DRUGS (4)
  1. PRADAXA [Suspect]
     Indication: ATRIAL FIBRILLATION
     Dates: start: 2011
  2. PRADAXA [Suspect]
     Dosage: 220 mg
     Dates: start: 201205
  3. PRADAXA [Suspect]
     Dates: start: 20120920, end: 20120921
  4. PRADAXA [Suspect]
     Dates: start: 20120925

REACTIONS (5)
  - Intestinal obstruction [Unknown]
  - Ureteric stenosis [Unknown]
  - Ureteric injury [Unknown]
  - Haematuria [Unknown]
  - Haematuria [Unknown]
